FAERS Safety Report 14307410 (Version 3)
Quarter: 2018Q1

REPORT INFORMATION
  Report Type: Spontaneous
  Country: US (occurrence: US)
  Receive Date: 20171220
  Receipt Date: 20180110
  Transmission Date: 20180509
  Serious: No
  Sender: FDA-Public Use
  Company Number: US-PFIZER INC-2017537967

PATIENT
  Age: 80 Year
  Sex: Female
  Weight: 87.53 kg

DRUGS (2)
  1. LYRICA [Suspect]
     Active Substance: PREGABALIN
     Indication: PAIN IN EXTREMITY
     Dosage: 25 MG, 1 CAPSULE PER DAY FOR ONE WEEK
     Route: 048
     Dates: start: 20171205
  2. LYRICA [Suspect]
     Active Substance: PREGABALIN
     Indication: NEURALGIA
     Dosage: 25 MG, ONE CAPSULE BY MOUTH TWICE A DAY
     Route: 048
     Dates: start: 20171213, end: 20171215

REACTIONS (3)
  - Diarrhoea [Recovering/Resolving]
  - Dyspnoea [Recovering/Resolving]
  - Fatigue [Unknown]

NARRATIVE: CASE EVENT DATE: 20171215
